FAERS Safety Report 20876576 (Version 1)
Quarter: 2022Q2

REPORT INFORMATION
  Report Type: Spontaneous
  Country: US (occurrence: US)
  Receive Date: 20220526
  Receipt Date: 20220526
  Transmission Date: 20220721
  Serious: Yes (Other)
  Sender: FDA-Public Use
  Company Number: US-STRIDES ARCOLAB LIMITED-2021SP026701

PATIENT
  Age: 49 Year
  Sex: Female

DRUGS (3)
  1. VANCOMYCIN [Suspect]
     Active Substance: VANCOMYCIN
     Indication: Staphylococcal infection
     Dosage: UNK
     Route: 065
  2. DAPTOMYCIN [Suspect]
     Active Substance: DAPTOMYCIN
     Indication: Staphylococcal infection
     Dosage: 6 MILLIGRAM/KILOGRAM, ON DAY 5
     Route: 042
  3. DAPTOMYCIN [Suspect]
     Active Substance: DAPTOMYCIN
     Dosage: CONTINUED FOR ADDITIONAL 6 WEEKS (TOTAL 46 DAYS)
     Route: 042

REACTIONS (1)
  - Pathogen resistance [Unknown]
